FAERS Safety Report 8945431 (Version 4)
Quarter: 2012Q4

REPORT INFORMATION
  Report Type: 
  Country: GB (occurrence: GB)
  Receive Date: 20121205
  Receipt Date: 20121226
  Transmission Date: 20130627
  Serious: Yes (Other)
  Sender: FDA-Public Use
  Company Number: PHFR2012GB005939

PATIENT
  Age: 66 Year
  Sex: Female

DRUGS (1)
  1. CLOZARIL [Suspect]
     Indication: SCHIZOPHRENIA
     Dosage: UNK UKN, UNK
     Route: 048
     Dates: start: 20120925

REACTIONS (5)
  - Neutrophil count increased [Not Recovered/Not Resolved]
  - Haemoglobin decreased [Not Recovered/Not Resolved]
  - White blood cell count increased [Not Recovered/Not Resolved]
  - Platelet count increased [Not Recovered/Not Resolved]
  - Differential white blood cell count abnormal [Recovered/Resolved]
